FAERS Safety Report 9144270 (Version 1)
Quarter: 2013Q1

REPORT INFORMATION
  Report Type: Spontaneous
  Country: IT (occurrence: IT)
  Receive Date: 20130306
  Receipt Date: 20130306
  Transmission Date: 20140127
  Serious: Yes (Hospitalization)
  Sender: FDA-Public Use
  Company Number: IT-TEVA-389552ISR

PATIENT
  Age: 93 Year
  Sex: Female

DRUGS (14)
  1. CLARITHROMYCINA [Suspect]
     Indication: PHARYNGITIS
     Dosage: 1 DOSAGE FORMS DAILY;
     Route: 048
     Dates: start: 20121201, end: 20121204
  2. LANOXIN [Suspect]
     Dosage: 1 DOSAGE FORMS DAILY; STRENGTH: 0.25 MG
     Route: 048
     Dates: start: 20111205, end: 20121204
  3. CONGESCOR [Concomitant]
     Dosage: STRENGTH: 2.5 MG
  4. LASIX [Concomitant]
     Dosage: STRENGTH 25 MG
  5. CARDIOASPIRIN [Concomitant]
     Dosage: STRENGTH: 100 MG
  6. PEPTAZOL [Concomitant]
     Dosage: STRENGTH: 20 MG
  7. MONOKET [Concomitant]
     Dosage: STRENGTH: 20 MG
  8. SERETIDE DISKUS 50/100 [Concomitant]
     Dosage: 50MCG SALMETEROL/100MCG FLUTICASONE
  9. ZYLORIC [Concomitant]
     Dosage: STRENGTH: 300 MG
  10. DROPAXIN [Concomitant]
     Dosage: 10MG/ML
  11. ALPRAZIG [Concomitant]
     Dosage: 0.75 MG/ML
  12. PLASIL [Concomitant]
     Dosage: 10 MG/10ML
  13. BENTELAN [Concomitant]
     Dosage: 4MG/2ML
  14. SIMVASTATINA [Concomitant]

REACTIONS (4)
  - Vomiting [Not Recovered/Not Resolved]
  - Blood creatinine increased [Not Recovered/Not Resolved]
  - Blood potassium increased [Not Recovered/Not Resolved]
  - Toxicity to various agents [Not Recovered/Not Resolved]
